FAERS Safety Report 7945098-9 (Version None)
Quarter: 2011Q4

REPORT INFORMATION
  Report Type: 
  Country: None (occurrence: None)
  Receive Date: 20111129
  Receipt Date: 20111129
  Transmission Date: 20120403
  Serious: Yes (Other)
  Sender: FDA-Public Use
  Company Number: None

PATIENT
  Age: 27 Year
  Sex: Female
  Weight: 49.895 kg

DRUGS (1)
  1. NIGHT TIME MULTI-SYMPTOM COLD [Suspect]
     Indication: NASOPHARYNGITIS
     Dosage: HALF OF ONE DOSE -ONE PILL-
     Route: 048
     Dates: start: 20111127, end: 20111127

REACTIONS (10)
  - NAUSEA [None]
  - DIZZINESS [None]
  - DYSGEUSIA [None]
  - SYNCOPE [None]
  - CONFUSIONAL STATE [None]
  - COLD SWEAT [None]
  - SOMNOLENCE [None]
  - DIARRHOEA [None]
  - LOSS OF CONSCIOUSNESS [None]
  - NO REACTION ON PREVIOUS EXPOSURE TO DRUG [None]
